FAERS Safety Report 21932489 (Version 1)
Quarter: 2023Q1

REPORT INFORMATION
  Report Type: Other
  Country: US (occurrence: US)
  Receive Date: 20230131
  Receipt Date: 20230131
  Transmission Date: 20230417
  Serious: No
  Sender: FDA-Public Use
  Company Number: US-DECIPHERA PHARMACEUTICALS LLC-2023US000011

PATIENT
  Sex: Male

DRUGS (4)
  1. QINLOCK [Suspect]
     Active Substance: RIPRETINIB
     Indication: Gastrointestinal stromal tumour
     Dosage: 150 MILLIGRAM, QD
     Route: 048
     Dates: start: 20221007
  2. LISINOPRIL [Suspect]
     Active Substance: LISINOPRIL
     Indication: Blood pressure increased
     Dosage: 20 MILLIGRAM
  3. LISINOPRIL [Suspect]
     Active Substance: LISINOPRIL
     Dosage: 40 MILLIGRAM
  4. LISINOPRIL [Suspect]
     Active Substance: LISINOPRIL
     Dosage: UNK

REACTIONS (11)
  - Throat tightness [Unknown]
  - Lymphadenopathy [Unknown]
  - Amnesia [Unknown]
  - Illness [Unknown]
  - Dizziness [Unknown]
  - Gingival pain [Unknown]
  - Blood pressure increased [Unknown]
  - Stomatitis [Unknown]
  - Decreased appetite [Unknown]
  - Nausea [Unknown]
  - Alopecia [Unknown]
